FAERS Safety Report 26071822 (Version 1)
Quarter: 2025Q4

REPORT INFORMATION
  Report Type: Spontaneous
  Country: EU (occurrence: EU)
  Receive Date: 20251120
  Receipt Date: 20251120
  Transmission Date: 20260117
  Serious: Yes (Other)
  Sender: BAUSCH AND LOMB
  Company Number: None

PATIENT
  Age: 49 Year
  Sex: Female

DRUGS (6)
  1. METRONIDAZOLE [Suspect]
     Active Substance: METRONIDAZOLE
     Indication: Helicobacter infection
     Dosage: 4
     Route: 065
     Dates: start: 20251022, end: 20251101
  2. METRONIDAZOLE [Suspect]
     Active Substance: METRONIDAZOLE
     Dosage: DOSE RE-INTRODUCED
     Route: 065
  3. CLARITHROMYCIN [Suspect]
     Active Substance: CLARITHROMYCIN
     Indication: Helicobacter infection
     Dosage: 4
     Route: 065
     Dates: start: 20251022, end: 20251101
  4. CLARITHROMYCIN [Suspect]
     Active Substance: CLARITHROMYCIN
     Dosage: DOSE RE-INTRODUCED
     Route: 065
  5. AMOXICILLIN [Suspect]
     Active Substance: AMOXICILLIN
     Indication: Helicobacter infection
     Dosage: 4
     Route: 065
     Dates: start: 20251022, end: 20251101
  6. AMOXICILLIN [Suspect]
     Active Substance: AMOXICILLIN
     Dosage: DOSE RE-INTRODUCED
     Route: 065

REACTIONS (4)
  - Tongue oedema [Unknown]
  - Palatal oedema [Unknown]
  - Oral mucosal erythema [Unknown]
  - Oropharyngeal discomfort [Unknown]

NARRATIVE: CASE EVENT DATE: 20251025
